FAERS Safety Report 5916985-8 (Version None)
Quarter: 2008Q4

REPORT INFORMATION
  Report Type: 
  Country: None (occurrence: None)
  Receive Date: 20081013
  Receipt Date: 20081008
  Transmission Date: 20090506
  Serious: Yes (Death, Life-Threatening, Hospitalization, Disabling)
  Sender: FDA-Public Use
  Company Number: US-GENENTECH-257059

PATIENT
  Sex: Male
  Weight: 90.9 kg

DRUGS (20)
  1. BEVACIZUMAB [Suspect]
     Indication: COLORECTAL CANCER
     Dosage: 5 MG/KG, Q2W
     Route: 042
     Dates: start: 20070620
  2. LEUCOVORIN CALCIUM [Concomitant]
     Indication: COLORECTAL CANCER
     Dosage: 840 MG, Q2W
     Route: 042
     Dates: start: 20070620
  3. FLUOROURACIL [Concomitant]
     Indication: COLORECTAL CANCER
     Dosage: 840 MG, Q2W
     Route: 042
     Dates: start: 20070620
  4. FLUOROURACIL [Concomitant]
     Dosage: 5040 MG, Q2W
     Route: 042
     Dates: start: 20070620
  5. DIOVAN [Concomitant]
     Indication: HYPERTENSION
     Dosage: 80 MG, QD
     Route: 048
     Dates: start: 20050101
  6. LORTAB [Concomitant]
     Indication: PAIN
     Dosage: 500 MG, PRN
     Route: 048
     Dates: start: 20070525
  7. COMPAZINE [Concomitant]
     Indication: NAUSEA
     Dosage: 10 MG, PRN
     Route: 048
     Dates: start: 20070611
  8. TUSSINEX (UNK INGREDIENTS) [Concomitant]
     Indication: COUGH
     Dosage: 1 TSP, PRN
     Route: 048
     Dates: start: 20070515
  9. CLINDAMYCIN HCL [Concomitant]
     Indication: RASH
     Dosage: 1 %, PRN
     Route: 061
     Dates: start: 20070630
  10. BENADRYL [Concomitant]
     Indication: RASH
     Dosage: 25 MG, PRN
     Route: 048
     Dates: start: 20070824
  11. BENADRYL [Concomitant]
     Indication: PRURITUS
  12. ANZEMET [Concomitant]
     Indication: NAUSEA
     Dosage: 1000 MG, Q2W
     Route: 042
     Dates: start: 20070620
  13. DECADRON [Concomitant]
     Indication: COLORECTAL CANCER
     Dosage: 12 MG, Q2W
     Route: 042
     Dates: start: 20070620
  14. ATARAX [Concomitant]
     Indication: RASH
     Dosage: 25 MG, PRN
     Route: 048
     Dates: start: 20071003
  15. ATARAX [Concomitant]
     Indication: PRURITUS
  16. MIRALAX [Concomitant]
     Indication: CONSTIPATION
     Dosage: 1 UNK, Q3D
     Route: 048
     Dates: start: 20071024
  17. DURAGESIC-100 [Concomitant]
     Indication: PAIN
     Dosage: 50 A?G, Q3D
     Route: 062
     Dates: start: 20080109
  18. OXYCODONE HCL [Concomitant]
     Indication: PAIN
     Dosage: 5 MG, PRN
     Route: 048
     Dates: start: 20080109
  19. OXYCODONE HCL [Concomitant]
     Dosage: 10 MG, PRN
     Route: 048
     Dates: start: 20080109
  20. REGLAN [Concomitant]
     Indication: DYSPEPSIA
     Dosage: 10 MG, UNK
     Route: 048
     Dates: start: 20080109

REACTIONS (1)
  - SEPSIS [None]
